FAERS Safety Report 4978073-7 (Version None)
Quarter: 2006Q2

REPORT INFORMATION
  Report Type: 
  Country: None (occurrence: None)
  Receive Date: 20060414
  Receipt Date: 20060407
  Transmission Date: 20061013
  Serious: Yes (Hospitalization, Other)
  Sender: FDA-Public Use
  Company Number: 2006-02-0146

PATIENT
  Age: 39 Year
  Sex: Male

DRUGS (10)
  1. ADENOSINE [Suspect]
     Indication: DIAGNOSTIC PROCEDURE
     Dosage: 140 MG/KG/MM INTRAVENOUS
     Route: 042
     Dates: start: 20050115, end: 20050115
  2. PEGASYS [Suspect]
     Indication: HEPATITIS C
  3. RIBAVIRIN [Suspect]
     Dosage: ORAL
     Route: 048
  4. LANSOPRAZOLE [Concomitant]
  5. ACTIGALL [Concomitant]
  6. NEORAL [Concomitant]
  7. PROTONIX [Concomitant]
  8. PIPERACILLIN SODIUM [Concomitant]
  9. TAZOBACTAM [Concomitant]
  10. VANCOMYCIN HYDROCHLORIDE [Concomitant]

REACTIONS (9)
  - ATRIAL FIBRILLATION [None]
  - ATRIOVENTRICULAR BLOCK [None]
  - BLOOD PRESSURE INCREASED [None]
  - DILATATION ATRIAL [None]
  - DRUG INTERACTION [None]
  - HEART VALVE INSUFFICIENCY [None]
  - RENAL FAILURE [None]
  - SINUS ARREST [None]
  - STREPTOCOCCAL BACTERAEMIA [None]
